FAERS Safety Report 12834662 (Version 3)
Quarter: 2017Q1

REPORT INFORMATION
  Report Type: Spontaneous
  Country: US (occurrence: US)
  Receive Date: 20161010
  Receipt Date: 20170302
  Transmission Date: 20170428
  Serious: No
  Sender: FDA-Public Use
  Company Number: US-PFIZER INC-2016471490

PATIENT
  Age: 74 Year
  Sex: Male

DRUGS (1)
  1. NEURONTIN [Suspect]
     Active Substance: GABAPENTIN
     Indication: PAIN MANAGEMENT
     Dosage: 100 MG, THREE TIMES A DAY
     Route: 048
     Dates: start: 20130830, end: 20131009

REACTIONS (5)
  - Aggression [Recovered/Resolved]
  - Drug hypersensitivity [Unknown]
  - Anger [Recovered/Resolved]
  - Condition aggravated [Recovered/Resolved]
  - Product use issue [Unknown]

NARRATIVE: CASE EVENT DATE: 20131009
